FAERS Safety Report 4928712-1 (Version None)
Quarter: 2006Q1

REPORT INFORMATION
  Report Type: 
  Country: None (occurrence: None)
  Receive Date: 20060227
  Receipt Date: 20060227
  Transmission Date: 20060701
  Serious: Yes (Hospitalization)
  Sender: FDA-Public Use
  Company Number: None

PATIENT
  Age: 75 Year
  Sex: Male
  Weight: 146.5118 kg

DRUGS (1)
  1. DIGOXIN [Suspect]
     Indication: ATRIAL FIBRILLATION
     Dosage: 3 TABS M,W,F PO, 2 TABS S,T,TH,SA PO
     Route: 048
     Dates: start: 20050622, end: 20060214

REACTIONS (11)
  - BLOOD PRESSURE DIASTOLIC DECREASED [None]
  - BRADYCARDIA [None]
  - BREATH SOUNDS ABNORMAL [None]
  - CARDIAC FAILURE CONGESTIVE [None]
  - DYSPNOEA [None]
  - DYSPNOEA PAROXYSMAL NOCTURNAL [None]
  - OEDEMA PERIPHERAL [None]
  - ORTHOPNOEA [None]
  - OVERDOSE [None]
  - PITTING OEDEMA [None]
  - TREATMENT NONCOMPLIANCE [None]
